FAERS Safety Report 25740783 (Version 3)
Quarter: 2025Q3

REPORT INFORMATION
  Report Type: Spontaneous
  Country: US (occurrence: US)
  Receive Date: 20250829
  Receipt Date: 20250930
  Transmission Date: 20251021
  Serious: No
  Sender: SANOFI AVENTIS
  Company Number: US-SANOFI-02634617

PATIENT
  Age: 70 Year
  Sex: Male

DRUGS (3)
  1. DUPIXENT [Suspect]
     Active Substance: DUPILUMAB
     Indication: Nasal polyps
     Dosage: 300 MG, QOW
     Route: 058
     Dates: start: 20250809
  2. METFORMIN [Concomitant]
     Active Substance: METFORMIN HYDROCHLORIDE
  3. TRULICITY [Concomitant]
     Active Substance: DULAGLUTIDE

REACTIONS (3)
  - Blood sodium increased [Unknown]
  - Accidental exposure to product [Unknown]
  - Exposure via skin contact [Unknown]

NARRATIVE: CASE EVENT DATE: 20250101
